FAERS Safety Report 6133474-9 (Version None)
Quarter: 2009Q1

REPORT INFORMATION
  Report Type: 
  Country: None (occurrence: None)
  Receive Date: 20090326
  Receipt Date: 20090316
  Transmission Date: 20090719
  Serious: Yes (Hospitalization)
  Sender: FDA-Public Use
  Company Number: IT-BAXTER-2008BH012457

PATIENT
  Age: 42 Year
  Sex: Female

DRUGS (15)
  1. SODIUM CHLORIDE 0.9% IN PLASTIC CONTAINER [Suspect]
     Indication: DRUG USE FOR UNKNOWN INDICATION
     Route: 042
     Dates: start: 20080721, end: 20080721
  2. SODIUM CHLORIDE 0.9% IN PLASTIC CONTAINER [Suspect]
     Route: 042
     Dates: start: 20080721, end: 20080721
  3. SODIUM CHLORIDE 0.9% IN PLASTIC CONTAINER [Suspect]
     Route: 042
     Dates: start: 20080721, end: 20080721
  4. SODIUM CHLORIDE 0.9% IN PLASTIC CONTAINER [Suspect]
     Route: 042
     Dates: start: 20080721, end: 20080721
  5. DEXTROSE 5% [Suspect]
     Indication: DRUG USE FOR UNKNOWN INDICATION
     Route: 042
     Dates: start: 20080721, end: 20080721
  6. METHERGINE [Suspect]
     Indication: CAESAREAN SECTION
     Route: 042
     Dates: start: 20080721, end: 20080721
  7. METHERGINE [Suspect]
     Route: 042
     Dates: start: 20080721, end: 20080721
  8. ATROPINE [Suspect]
     Indication: DRUG USE FOR UNKNOWN INDICATION
     Route: 042
     Dates: start: 20080721, end: 20080721
  9. ATROPINE [Suspect]
     Route: 042
     Dates: start: 20080721, end: 20080721
  10. SYNTOCINON [Suspect]
     Indication: DRUG USE FOR UNKNOWN INDICATION
     Route: 042
     Dates: start: 20080721, end: 20080721
  11. BUPIVACAINE [Suspect]
     Indication: DRUG USE FOR UNKNOWN INDICATION
     Route: 024
     Dates: start: 20080721, end: 20080721
  12. EMAGEL [Suspect]
     Indication: DRUG USE FOR UNKNOWN INDICATION
     Route: 042
     Dates: start: 20080721, end: 20080721
  13. EMAGEL [Suspect]
     Route: 042
     Dates: start: 20080721, end: 20080721
  14. BENTELAN [Suspect]
     Indication: DRUG USE FOR UNKNOWN INDICATION
     Route: 042
     Dates: start: 20080721, end: 20080721
  15. BENTELAN [Suspect]
     Route: 042
     Dates: start: 20080721, end: 20080721

REACTIONS (1)
  - DISSEMINATED INTRAVASCULAR COAGULATION [None]
